FAERS Safety Report 5126829-2 (Version None)
Quarter: 2006Q4

REPORT INFORMATION
  Report Type: 
  Country: None (occurrence: None)
  Receive Date: 20061011
  Receipt Date: 20061011
  Transmission Date: 20070319
  Serious: Yes (Hospitalization)
  Sender: FDA-Public Use
  Company Number: None

PATIENT
  Age: 59 Year
  Sex: Male
  Weight: 87 kg

DRUGS (1)
  1. IBUPROFEN [Suspect]
     Indication: PAIN
     Dosage: 800MG  Q8H P  Q8H  PO
     Route: 048

REACTIONS (7)
  - ABDOMINAL DISCOMFORT [None]
  - BLOOD CREATININE INCREASED [None]
  - DEHYDRATION [None]
  - DRUG WITHDRAWAL SYNDROME [None]
  - NAUSEA [None]
  - PYREXIA [None]
  - VOMITING [None]
